FAERS Safety Report 17084106 (Version 1)
Quarter: 2019Q4

REPORT INFORMATION
  Report Type: Spontaneous
  Country: DE (occurrence: DE)
  Receive Date: 20191127
  Receipt Date: 20191127
  Transmission Date: 20200122
  Serious: Yes (Hospitalization)
  Sender: FDA-Public Use
  Company Number: DE-MYLANLABS-2019M1115514

PATIENT
  Age: 84 Year
  Sex: Female

DRUGS (13)
  1. AMLODIPINE [Concomitant]
     Active Substance: AMLODIPINE BESYLATE
     Dosage: 10 MG, 1-0-0-0, TABLETTEN
     Route: 048
  2. CANDESARTAN. [Concomitant]
     Active Substance: CANDESARTAN
     Dosage: 32 MG, 1-0-0-0, TABLETTEN
     Route: 048
  3. BISOPROLOL                         /00802602/ [Concomitant]
     Active Substance: BISOPROLOL
     Dosage: 10 MG, 1-0-0-0, TABLETTEN
     Route: 048
  4. PREGABALIN. [Concomitant]
     Active Substance: PREGABALIN
     Dosage: 75 MG, 1-0-1-0
  5. LUMIGAN [Concomitant]
     Active Substance: BIMATOPROST
     Dosage: NK MG, NK
     Route: 047
  6. CLOPIDOGREL [Suspect]
     Active Substance: CLOPIDOGREL BISULFATE
     Indication: PRODUCT USED FOR UNKNOWN INDICATION
     Dosage: 75 MG, 1-0-0-0, TABLETTEN
     Route: 048
  7. LEVOTHYROXINE. [Concomitant]
     Active Substance: LEVOTHYROXINE
     Dosage: 100 ?G, 1-0-0-0
  8. TORASEMID [Concomitant]
     Active Substance: TORSEMIDE
     Dosage: 10 MG, 1-0-0-0, TABLETTEN
     Route: 048
  9. PANTOPRAZOLE [Concomitant]
     Active Substance: PANTOPRAZOLE
     Dosage: 40 MG, 1-0-0-0, TABLETTEN
     Route: 048
  10. ASPIRIN. [Suspect]
     Active Substance: ASPIRIN
     Indication: PRODUCT USED FOR UNKNOWN INDICATION
     Dosage: 100 MG, 1-0-0-0, TABLETTEN
     Route: 048
  11. RIVAROXABAN [Suspect]
     Active Substance: RIVAROXABAN
     Indication: PRODUCT USED FOR UNKNOWN INDICATION
     Dosage: 15 MG, 1-0-0-0, TABLETTEN
     Route: 048
  12. CLINDAMYCIN. [Concomitant]
     Active Substance: CLINDAMYCIN
     Dosage: 300 MG, 1-0-1-0
  13. ATORVASTATIN [Concomitant]
     Active Substance: ATORVASTATIN
     Dosage: 60 MG, 0-0-1-0, TABLETTEN
     Route: 048

REACTIONS (6)
  - Fall [Unknown]
  - Asthenia [Unknown]
  - Nausea [Unknown]
  - Haematochezia [Unknown]
  - Vomiting [Unknown]
  - Haematemesis [Unknown]
